FAERS Safety Report 4848624-1 (Version None)
Quarter: 2005Q4

REPORT INFORMATION
  Report Type: 
  Country: None (occurrence: None)
  Receive Date: 20051206
  Receipt Date: 20051123
  Transmission Date: 20060501
  Serious: Yes (Hospitalization)
  Sender: FDA-Public Use
  Company Number: 2005139266

PATIENT
  Age: 16 Year
  Sex: Female
  Weight: 70 kg

DRUGS (6)
  1. NEURONTIN [Suspect]
     Indication: NEURALGIA
     Dosage: 300 MG (100 MG, 3 IN 1 D), ORAL
     Route: 048
     Dates: start: 20050915, end: 20050930
  2. AMITRIPTYLINE HYDROCHLORIDE [Suspect]
     Indication: NEURALGIA
     Dosage: 20 MG (1 D), ORAL
     Route: 048
  3. ACETAMINOPHEN W/ CODEINE [Suspect]
     Indication: NEURALGIA
     Dosage: ORAL
     Route: 048
  4. PIRITON (CHLORPHENAMINE MALEATE) [Concomitant]
  5. FERROUS SULPHATE (FERROUS SULFATE) [Concomitant]
  6. ANALGESICS (ANALGESICS) [Concomitant]

REACTIONS (4)
  - ABDOMINAL PAIN [None]
  - DRUG INEFFECTIVE [None]
  - EYELID PTOSIS [None]
  - SWELLING FACE [None]
